FAERS Safety Report 12454619 (Version 1)
Quarter: 2016Q2

REPORT INFORMATION
  Report Type: Report from Study
  Country: DE (occurrence: DE)
  Receive Date: 20160610
  Receipt Date: 20160610
  Transmission Date: 20160815
  Serious: Yes (Other)
  Sender: FDA-Public Use
  Company Number: DE-ROCHE-1768858

PATIENT
  Age: 52 Year
  Sex: Female

DRUGS (1)
  1. TRASTUZUMAB [Suspect]
     Active Substance: TRASTUZUMAB
     Indication: HER-2 POSITIVE BREAST CANCER
     Route: 042
     Dates: start: 20120704, end: 20130725

REACTIONS (14)
  - Headache [Recovered/Resolved]
  - Erythema [Recovered/Resolved]
  - Cough [Recovered/Resolved]
  - Blindness [Recovered/Resolved]
  - Diarrhoea [Recovered/Resolved]
  - Lymphoedema [Recovered/Resolved]
  - Pollakiuria [Recovered/Resolved]
  - Laryngitis [Recovered/Resolved]
  - Weight decreased [Recovered/Resolved]
  - Upper respiratory tract infection [Recovered/Resolved]
  - Sleep disorder [Recovered/Resolved]
  - Anaemia [Recovered/Resolved]
  - Rash [Recovered/Resolved]
  - Bone pain [Recovered/Resolved]

NARRATIVE: CASE EVENT DATE: 20120725
